FAERS Safety Report 5360389-6 (Version None)
Quarter: 2007Q2

REPORT INFORMATION
  Report Type: 
  Country: None (occurrence: None)
  Receive Date: 20070614
  Receipt Date: 20070604
  Transmission Date: 20071010
  Serious: Yes (Hospitalization)
  Sender: FDA-Public Use
  Company Number: 2007BI012102

PATIENT
  Age: 50 Year
  Sex: Female

DRUGS (3)
  1. AVONEX [Suspect]
     Indication: MULTIPLE SCLEROSIS
     Dosage: 30 UG;QW;IM
     Route: 030
     Dates: start: 19991101, end: 20040512
  2. AVONEX [Suspect]
     Indication: MULTIPLE SCLEROSIS
     Dosage: 7.5 UG;QW;IM
     Route: 030
     Dates: start: 20050628, end: 20060103
  3. AVONEX [Suspect]
     Indication: MULTIPLE SCLEROSIS
     Dosage: IM
     Route: 030
     Dates: start: 20060301, end: 20070521

REACTIONS (4)
  - HYPERSENSITIVITY [None]
  - JOINT SWELLING [None]
  - OEDEMA PERIPHERAL [None]
  - RASH [None]
